FAERS Safety Report 9385739 (Version 3)
Quarter: 2016Q1

REPORT INFORMATION
  Report Type: Spontaneous
  Country: AT (occurrence: AT)
  Receive Date: 20130705
  Receipt Date: 20160307
  Transmission Date: 20160526
  Serious: Yes (Other)
  Sender: FDA-Public Use
  Company Number: AT-BRISTOL-MYERS SQUIBB COMPANY-19069061

PATIENT
  Age: 27 Year
  Sex: Female

DRUGS (4)
  1. VINCRISTINE [Suspect]
     Active Substance: VINCRISTINE
     Indication: EWING^S SARCOMA
     Dosage: 2 MG, QD
     Route: 065
  2. IFOSFAMIDE. [Suspect]
     Active Substance: IFOSFAMIDE
     Indication: EWING^S SARCOMA
     Dosage: 3000 MG/M2, QD
     Route: 065
  3. DOXORUBICIN [Suspect]
     Active Substance: DOXORUBICIN
     Indication: EWING^S SARCOMA
     Dosage: 20 MG/M2, QD
     Route: 065
  4. VEPESID [Suspect]
     Active Substance: ETOPOSIDE
     Indication: EWING^S SARCOMA
     Dosage: 150 MG/M2, QD
     Route: 065

REACTIONS (5)
  - Maternal exposure during pregnancy [Recovered/Resolved]
  - Foetal death [Unknown]
  - Oligohydramnios [Unknown]
  - Abortion induced [Unknown]
  - Product use issue [Unknown]
